FAERS Safety Report 8966184 (Version 4)
Quarter: 2013Q1

REPORT INFORMATION
  Report Type: Spontaneous
  Country: US (occurrence: None)
  Receive Date: 20121204
  Receipt Date: 20130115
  Transmission Date: 20140127
  Serious: Yes (Death, Hospitalization)
  Sender: FDA-Public Use
  Company Number: UTC-026016

PATIENT
  Age: 84 Year
  Sex: Female
  Weight: 102.7 kg

DRUGS (1)
  1. TYVASO [Suspect]
     Indication: PULMONARY ARTERIAL HYPERTENSION
     Route: 055
     Dates: start: 20121031, end: 20121108

REACTIONS (4)
  - Respiratory failure [None]
  - Cardiac failure congestive [None]
  - Chronic obstructive pulmonary disease [None]
  - Bronchitis [None]
